FAERS Safety Report 15806239 (Version 6)
Quarter: 2019Q4

REPORT INFORMATION
  Report Type: Spontaneous
  Country: US (occurrence: US)
  Receive Date: 20190110
  Receipt Date: 20191007
  Transmission Date: 20200122
  Serious: No
  Sender: FDA-Public Use
  Company Number: US-PFIZER INC-2018313698

PATIENT
  Age: 51 Year
  Sex: Male
  Weight: 113.4 kg

DRUGS (5)
  1. LYRICA [Suspect]
     Active Substance: PREGABALIN
     Indication: NEUROPATHY PERIPHERAL
     Dosage: 350 MG, DAILY [150 MG AT BED TIME AND THEN I TAKE A 100 MG IN THE MORNING AND 100 MG IN A MIDAFTERN]
     Route: 048
  2. LYRICA [Suspect]
     Active Substance: PREGABALIN
     Dosage: 100 MG, 2X/DAY (100 MG IS TWICE A DAY, 1 CAPSULE IN MORNING AND 1 IN THE AFTERNOON)
  3. LYRICA [Suspect]
     Active Substance: PREGABALIN
     Dosage: UNK, (STATED THE 150 I TAKE AT BEDTIME)
  4. HYDROCHLOROTHIAZIDE. [Concomitant]
     Active Substance: HYDROCHLOROTHIAZIDE
     Indication: HYPERTENSION
     Dosage: 25 MG, 1X/DAY
     Route: 048
  5. LYRICA [Suspect]
     Active Substance: PREGABALIN
     Indication: PAIN
     Dosage: 150 MG, 1X/DAY (1 (ONE) CAPSULE BY MOUTH AT BEDTIME)
     Route: 048

REACTIONS (5)
  - Sleep disorder [Unknown]
  - Drug withdrawal syndrome [Unknown]
  - Intentional product misuse [Unknown]
  - Product prescribing error [Unknown]
  - Anxiety [Unknown]
